FAERS Safety Report 5186409-X (Version None)
Quarter: 2006Q4

REPORT INFORMATION
  Report Type: 
  Country: None (occurrence: None)
  Receive Date: 20061213
  Receipt Date: 20061201
  Transmission Date: 20070319
  Serious: Yes (Other)
  Sender: FDA-Public Use
  Company Number: 2006143345

PATIENT
  Age: 73 Year
  Sex: Male
  Weight: 82 kg

DRUGS (12)
  1. LYRICA [Suspect]
     Dosage: 150 MG (75  MG, 2 IN 1 D), ORAL
     Route: 048
     Dates: start: 20061021, end: 20061027
  2. LANTUS [Concomitant]
  3. HUMALOG [Concomitant]
  4. PREVISCAN (FLUINDIONE) [Concomitant]
  5. PLAVIX [Concomitant]
  6. PRAVASTATIN [Concomitant]
  7. BISOPROLOL FUMARATE [Concomitant]
  8. CORDARONE [Concomitant]
  9. LASIX [Concomitant]
  10. RAMIPRIL [Concomitant]
  11. CLONAZEPAM [Concomitant]
  12. PANTOPRAZOLE SODIUM [Concomitant]

REACTIONS (1)
  - BLOOD GLUCOSE INCREASED [None]
